FAERS Safety Report 9224580 (Version 1)
Quarter: 2013Q2

REPORT INFORMATION
  Report Type: Spontaneous
  Country: US (occurrence: None)
  Receive Date: 20130411
  Receipt Date: 20130411
  Transmission Date: 20140414
  Serious: Yes (Hospitalization)
  Sender: FDA-Public Use
  Company Number: None

PATIENT
  Age: 74 Year
  Sex: Female
  Weight: 88 kg

DRUGS (12)
  1. COUMADIN [Suspect]
     Indication: ATRIAL FIBRILLATION
     Dosage: 2MG  OR  4MG   MONDAY   PO?CHRONIC
     Route: 048
  2. COUMADIN [Suspect]
     Dosage: 4MG   TWTHFSS   PO?CHRONIC
     Route: 048
  3. DIGOXIN [Concomitant]
  4. LISINOPRIL [Concomitant]
  5. HETZ [Concomitant]
  6. POTASSIUM [Concomitant]
  7. METOPROLOL [Concomitant]
  8. ARICEPT [Concomitant]
  9. TYLENOL [Concomitant]
  10. OMEPRAZOLE [Concomitant]
  11. SERTRALINE [Concomitant]
  12. GLUCOSAMINE [Concomitant]

REACTIONS (3)
  - Gastric polyps [None]
  - Upper gastrointestinal haemorrhage [None]
  - Haemorrhage [None]
